FAERS Safety Report 5327299-1 (Version None)
Quarter: 2007Q2

REPORT INFORMATION
  Report Type: 
  Country: None (occurrence: None)
  Receive Date: 20070511
  Receipt Date: 20070416
  Transmission Date: 20071010
  Serious: Yes (Hospitalization, Other)
  Sender: FDA-Public Use
  Company Number: DSA_29847_2007

PATIENT
  Sex: Female
  Weight: 99.7913 kg

DRUGS (6)
  1. VASOTEC [Suspect]
     Dosage: ORAL
     Route: 048
  2. VIOXX [Suspect]
     Indication: OSTEOARTHRITIS
     Dosage: 25 MG QD ORAL
     Route: 048
     Dates: start: 20030901
  3. PROCARDIA [Concomitant]
  4. PARACETAMOL ( ) [Concomitant]
  5. VALIUM /00266901/ ( ) [Concomitant]
  6. CALCIUM CHLORIDE [Concomitant]

REACTIONS (24)
  - ANAEMIA [None]
  - ANXIETY [None]
  - CAROTID ARTERY OCCLUSION [None]
  - CEREBRAL INFARCTION [None]
  - CEREBROVASCULAR ACCIDENT [None]
  - DEPRESSION [None]
  - DIABETES MELLITUS [None]
  - DIVERTICULITIS [None]
  - DRUG HYPERSENSITIVITY [None]
  - DYSPNOEA [None]
  - ELECTROCARDIOGRAM POOR R-WAVE PROGRESSION [None]
  - EMOTIONAL DISTRESS [None]
  - ENCEPHALOPATHY [None]
  - HYPERTENSION [None]
  - HYPERTENSIVE NEPHROPATHY [None]
  - HYPOAESTHESIA [None]
  - JOINT DISLOCATION [None]
  - MENINGIOMA [None]
  - MENTAL DISORDER [None]
  - NEPHROSCLEROSIS [None]
  - OBESITY [None]
  - QRS AXIS ABNORMAL [None]
  - RENAL FAILURE ACUTE [None]
  - VISION BLURRED [None]
